FAERS Safety Report 8008280-0 (Version None)
Quarter: 2011Q4

REPORT INFORMATION
  Report Type: 
  Country: None (occurrence: None)
  Receive Date: 20111227
  Receipt Date: 20111215
  Transmission Date: 20120403
  Serious: Yes (Other)
  Sender: FDA-Public Use
  Company Number: US-ASTRAZENECA-2011SE69887

PATIENT
  Age: 61 Year
  Sex: Female

DRUGS (1)
  1. SYMBICORT [Suspect]
     Dosage: TOTAL DAILY DOSAGE AND FREQUENCY: UNKNOWN.
     Route: 055

REACTIONS (4)
  - METASTASES TO BONE [None]
  - LUNG CARCINOMA CELL TYPE UNSPECIFIED STAGE IV [None]
  - LUNG INFECTION [None]
  - NEOPLASM MALIGNANT [None]
